FAERS Safety Report 15208299 (Version 2)
Quarter: 2018Q3

REPORT INFORMATION
  Report Type: Spontaneous
  Country: GB (occurrence: GB)
  Receive Date: 20180727
  Receipt Date: 20180801
  Transmission Date: 20181010
  Serious: Yes (Hospitalization, Other)
  Sender: FDA-Public Use
  Company Number: GB-PFIZER INC-2018294898

PATIENT
  Age: 43 Year
  Sex: Female

DRUGS (3)
  1. IBUPROFEN. [Suspect]
     Active Substance: IBUPROFEN
     Dosage: 16 DF, UNK (16 TABLETS)
     Route: 048
  2. PARACETAMOL [Suspect]
     Active Substance: ACETAMINOPHEN
     Dosage: 8 G, UNK
     Route: 048
  3. DICLOFENAC [Suspect]
     Active Substance: DICLOFENAC
     Dosage: 14 DF, UNK (14 TABLETS)
     Route: 048

REACTIONS (1)
  - Coma [Recovering/Resolving]
